FAERS Safety Report 5653541-3 (Version None)
Quarter: 2008Q1

REPORT INFORMATION
  Report Type: 
  Country: None (occurrence: None)
  Receive Date: 20080131
  Receipt Date: 20071130
  Transmission Date: 20080703
  Serious: No
  Sender: FDA-Public Use
  Company Number: US200711002355

PATIENT
  Age: 76 Year
  Sex: Male
  Weight: 96.1 kg

DRUGS (6)
  1. BYETTA [Suspect]
     Indication: TYPE 2 DIABETES MELLITUS
     Dosage: 5 UG, 2/D, SUBCUTANEOUS;10 UG, 2/D, SUBCUTANEOUS;10 UG, E/D, SUBCUTANEOUS;OTHER, SUBCUTANEOUS
     Route: 058
     Dates: start: 20060101, end: 20060101
  2. BYETTA [Suspect]
     Indication: TYPE 2 DIABETES MELLITUS
     Dosage: 5 UG, 2/D, SUBCUTANEOUS;10 UG, 2/D, SUBCUTANEOUS;10 UG, E/D, SUBCUTANEOUS;OTHER, SUBCUTANEOUS
     Route: 058
     Dates: start: 20071130, end: 20071130
  3. BYETTA [Suspect]
     Indication: TYPE 2 DIABETES MELLITUS
     Dosage: 5 UG, 2/D, SUBCUTANEOUS;10 UG, 2/D, SUBCUTANEOUS;10 UG, E/D, SUBCUTANEOUS;OTHER, SUBCUTANEOUS
     Route: 058
     Dates: start: 20060101
  4. BYETTA [Suspect]
     Indication: TYPE 2 DIABETES MELLITUS
     Dosage: 5 UG, 2/D, SUBCUTANEOUS;10 UG, 2/D, SUBCUTANEOUS;10 UG, E/D, SUBCUTANEOUS;OTHER, SUBCUTANEOUS
     Route: 058
     Dates: start: 20060101
  5. BYETTA [Suspect]
  6. METFORMIN HCL [Concomitant]

REACTIONS (2)
  - BLOOD GLUCOSE INCREASED [None]
  - INCORRECT DOSE ADMINISTERED [None]
